FAERS Safety Report 8055271-X (Version None)
Quarter: 2012Q1

REPORT INFORMATION
  Report Type: 
  Country: None (occurrence: None)
  Receive Date: 20120119
  Receipt Date: 20120106
  Transmission Date: 20120608
  Serious: Yes (Hospitalization)
  Sender: FDA-Public Use
  Company Number: US-ASTELLAS-2012US000238

PATIENT
  Sex: Female
  Weight: 54 kg

DRUGS (13)
  1. PROGRAF [Suspect]
     Dosage: 1.5 MG, BID
     Route: 048
     Dates: start: 20110322
  2. CORTICOSTEROIDS [Concomitant]
     Indication: GRAFT VERSUS HOST DISEASE IN SKIN
  3. CORTICOSTEROIDS [Concomitant]
     Indication: GRAFT VERSUS HOST DISEASE IN INTESTINE
     Dosage: 20 MG, UID/QD
     Route: 048
     Dates: start: 20071126
  4. PROGRAF [Suspect]
     Indication: GRAFT VERSUS HOST DISEASE IN INTESTINE
     Dosage: 5 MG, UID/QD
     Route: 065
     Dates: start: 20071127, end: 20071128
  5. PROGRAF [Suspect]
     Dosage: 1 MG, UID/QD
     Route: 065
     Dates: start: 20071202, end: 20071203
  6. MELPHALAN HYDROCHLORIDE [Concomitant]
     Indication: BONE MARROW TRANSPLANT
     Dosage: UNK
     Route: 065
  7. DILAUDID [Concomitant]
     Indication: ABDOMINAL PAIN
     Dosage: UNK
     Route: 065
     Dates: start: 20071101, end: 20071201
  8. FLUDARABINE PHOSPHATE [Concomitant]
     Indication: STEM CELL TRANSPLANT
     Dosage: UNK
     Route: 065
  9. SINGULAIR [Concomitant]
     Indication: ERYTHEMA
     Dosage: UNK
     Route: 065
     Dates: start: 20071101
  10. PROGRAF [Suspect]
     Indication: GRAFT VERSUS HOST DISEASE IN SKIN
     Dosage: 0.5 TO 2 MG, BID
     Route: 048
     Dates: start: 20071201, end: 20080301
  11. PROGRAF [Suspect]
     Dosage: 1 MG, UID/QD
     Route: 065
     Dates: start: 20071219, end: 20071220
  12. PROGRAF [Suspect]
     Dosage: 2 MG, BID
     Route: 048
     Dates: end: 20080321
  13. PROGRAF [Suspect]
     Dosage: 0.5 MG, UID/QD
     Route: 042
     Dates: start: 20080301, end: 20080301

REACTIONS (22)
  - VOMITING [None]
  - TACHYCARDIA [None]
  - RENAL FAILURE [None]
  - LIVER FUNCTION TEST ABNORMAL [None]
  - FAILURE TO THRIVE [None]
  - HYPOPHAGIA [None]
  - OEDEMA [None]
  - RASH MACULO-PAPULAR [None]
  - TOXICITY TO VARIOUS AGENTS [None]
  - BLOOD BILIRUBIN INCREASED [None]
  - ACUTE GRAFT VERSUS HOST DISEASE [None]
  - FALL [None]
  - STAPHYLOCOCCAL BACTERAEMIA [None]
  - PAIN [None]
  - SUBDURAL HAEMORRHAGE [None]
  - NAUSEA [None]
  - DEHYDRATION [None]
  - ASTHENIA [None]
  - OFF LABEL USE [None]
  - METABOLIC ENCEPHALOPATHY [None]
  - DIARRHOEA [None]
  - HYPERTENSION [None]
